FAERS Safety Report 10711345 (Version 1)
Quarter: 2015Q1

REPORT INFORMATION
  Report Type: Spontaneous
  Country: CN (occurrence: CN)
  Receive Date: 20150114
  Receipt Date: 20150114
  Transmission Date: 20150721
  Serious: Yes (Hospitalization)
  Sender: FDA-Public Use
  Company Number: CN-PFIZER INC-2015012000

PATIENT
  Age: 80 Year
  Sex: Male
  Weight: 74 kg

DRUGS (1)
  1. VFEND [Suspect]
     Active Substance: VORICONAZOLE
     Indication: PNEUMONIA
     Dosage: 200 MG, 2X/DAY
     Route: 048
     Dates: start: 20140415, end: 20140415

REACTIONS (6)
  - Mental disorder [Recovering/Resolving]
  - Dysphoria [Recovering/Resolving]
  - Crying [Recovering/Resolving]
  - Restlessness [Recovering/Resolving]
  - Irritability [Recovering/Resolving]
  - Insomnia [Recovering/Resolving]

NARRATIVE: CASE EVENT DATE: 20140415
